FAERS Safety Report 4412249-2 (Version None)
Quarter: 2004Q2

REPORT INFORMATION
  Report Type: 
  Country: None (occurrence: None)
  Receive Date: 20040630
  Receipt Date: 20040317
  Transmission Date: 20050107
  Serious: No
  Sender: FDA-Public Use
  Company Number: 04P-163-0253908-00

PATIENT
  Age: 62 Year
  Sex: Male
  Weight: 104.3273 kg

DRUGS (4)
  1. HUMIRA [Suspect]
     Indication: RHEUMATOID ARTHRITIS
     Dosage: 40 MG, 1 IN 2 WK, SUBCUTANEOUS
     Route: 058
     Dates: start: 20031201
  2. OXYCODONE HCL [Concomitant]
  3. TYLENOL W/ CODEINE NO. 4 [Concomitant]
  4. GABAPENTIN [Concomitant]

REACTIONS (3)
  - DISCOMFORT [None]
  - INSOMNIA [None]
  - PHARYNGOLARYNGEAL PAIN [None]
